FAERS Safety Report 8024234-2 (Version None)
Quarter: 2012Q1

REPORT INFORMATION
  Report Type: 
  Country: None (occurrence: None)
  Receive Date: 20120105
  Receipt Date: 20111228
  Transmission Date: 20120608
  Serious: Yes (Other)
  Sender: FDA-Public Use
  Company Number: PHHY2011VE113839

PATIENT
  Sex: Female

DRUGS (7)
  1. INDAPAMIDE [Concomitant]
  2. ZOLEDRONOC ACID [Suspect]
     Indication: OSTEOPOROSIS
     Dosage: 5 MG, ONCE A YEAR
     Route: 042
     Dates: start: 20100801
  3. COZAAR [Concomitant]
  4. LIPITOR [Concomitant]
  5. ENICAR [Concomitant]
  6. BISOPROLOL FUMARATE [Concomitant]
  7. GALVUS MET [Concomitant]
     Dosage: 1 DF (500 MG/50 MG), QD

REACTIONS (8)
  - VIITH NERVE PARALYSIS [None]
  - ANGINA UNSTABLE [None]
  - TENSION [None]
  - PAIN [None]
  - ARTHRALGIA [None]
  - BLOOD GLUCOSE ABNORMAL [None]
  - BONE PAIN [None]
  - PAIN IN EXTREMITY [None]
